FAERS Safety Report 5915419-7 (Version None)
Quarter: 2008Q4

REPORT INFORMATION
  Report Type: 
  Country: None (occurrence: None)
  Receive Date: 20081009
  Receipt Date: 20081009
  Transmission Date: 20090506
  Serious: No
  Sender: FDA-Public Use
  Company Number: None

PATIENT
  Age: 46 Year
  Sex: Female
  Weight: 56.6996 kg

DRUGS (1)
  1. HUMIRA [Suspect]
     Indication: COLITIS
     Dosage: 40 MG EVERY WEEK SQ
     Route: 058

REACTIONS (3)
  - EYE DISORDER [None]
  - HYPOAESTHESIA [None]
  - PARAESTHESIA [None]
